FAERS Safety Report 6397883-5 (Version None)
Quarter: 2009Q4

REPORT INFORMATION
  Report Type: 
  Country: None (occurrence: None)
  Receive Date: 20091013
  Receipt Date: 20091005
  Transmission Date: 20100525
  Serious: Yes (Death)
  Sender: FDA-Public Use
  Company Number: US-BIOGENIDEC-2009BI032135

PATIENT
  Age: 69 Year
  Sex: Male

DRUGS (2)
  1. AVONEX [Suspect]
     Indication: MULTIPLE SCLEROSIS
     Route: 030
     Dates: start: 20010608, end: 20020101
  2. MEDICATIONS (NOS) [Concomitant]
     Indication: DRUG USE FOR UNKNOWN INDICATION

REACTIONS (4)
  - ADVERSE DRUG REACTION [None]
  - ANAEMIA [None]
  - DRUG INEFFECTIVE [None]
  - MULTIPLE SCLEROSIS [None]
